FAERS Safety Report 24263482 (Version 1)
Quarter: 2024Q3

REPORT INFORMATION
  Report Type: Spontaneous
  Country: CN (occurrence: CN)
  Receive Date: 20240829
  Receipt Date: 20240829
  Transmission Date: 20241017
  Serious: Yes (Death, Hospitalization, Other)
  Sender: DR REDDYS
  Company Number: CN-RDY-SPO/CHN/24/0012545

PATIENT
  Age: 53 Year
  Sex: Male

DRUGS (27)
  1. PANTOPRAZOLE [Suspect]
     Active Substance: PANTOPRAZOLE
     Indication: Abdominal pain
  2. DICLOFENAC [Suspect]
     Active Substance: DICLOFENAC
     Indication: Abdominal pain
  3. OMEPRAZOLE [Suspect]
     Active Substance: OMEPRAZOLE
     Indication: Abdominal pain
  4. LIDOCAINE [Suspect]
     Active Substance: LIDOCAINE
     Indication: Abdominal pain
     Dosage: 2ML WAS GIVEN INTRAMUSCULARLY FOR PAIN RELIEF AT 12:20PM
     Route: 030
  5. DOPAMINE [Concomitant]
     Active Substance: DOPAMINE HYDROCHLORIDE
     Indication: Cardio-respiratory arrest
     Route: 042
  6. ATROPINE [Concomitant]
     Active Substance: ATROPINE
     Indication: Cardio-respiratory arrest
     Dosage: IV INJECTION 1MG TWICE
     Route: 042
  7. ATROPINE [Concomitant]
     Active Substance: ATROPINE
     Dosage: IV INJECTION OF 0.5MG TWICE
     Route: 042
  8. EPINEPHRINE [Concomitant]
     Active Substance: EPINEPHRINE
     Indication: Cardio-respiratory arrest
     Dosage: 1MG WERE IMMEDIATELY GIVEN
     Route: 042
  9. EPINEPHRINE [Concomitant]
     Active Substance: EPINEPHRINE
     Dosage: INJECTION 1MG FOR 5?TIMES
  10. METHYLPREDNISOLONE SODIUM SUCCINATE [Concomitant]
     Active Substance: METHYLPREDNISOLONE SODIUM SUCCINATE
     Indication: Product used for unknown indication
     Dosage: 40MG
  11. DEXAMETHASONE [Concomitant]
     Active Substance: DEXAMETHASONE
     Indication: Cardio-respiratory arrest
     Dosage: 5MG THROUGH IV INJECTION
  12. DEXAMETHASONE [Concomitant]
     Active Substance: DEXAMETHASONE
     Dosage: LYOPHILISED POWDER 5MG
  13. CALCIUM [Concomitant]
     Active Substance: CALCIUM
     Indication: Product used for unknown indication
  14. MAGNESIUM [Concomitant]
     Active Substance: MAGNESIUM
     Indication: Product used for unknown indication
  15. POTASSIUM [Concomitant]
     Active Substance: POTASSIUM
     Indication: Product used for unknown indication
  16. SODIUM [Concomitant]
     Active Substance: SODIUM
     Indication: Product used for unknown indication
  17. DEXTROSE [Concomitant]
     Active Substance: DEXTROSE\DEXTROSE MONOHYDRATE
     Indication: Product used for unknown indication
     Dosage: 5% 250ML TWICE DAILY
     Route: 042
  18. DEXTROSE [Concomitant]
     Active Substance: DEXTROSE\DEXTROSE MONOHYDRATE
     Dosage: IV DRIP OF  5% 250ML
     Route: 041
  19. DEXTROSE [Concomitant]
     Active Substance: DEXTROSE\DEXTROSE MONOHYDRATE
     Dosage: 500ML VIA IV DRIP, ONCE DAILY AND SEMI-LIQUID DIET
     Route: 041
  20. DEXTROSE [Concomitant]
     Active Substance: DEXTROSE\DEXTROSE MONOHYDRATE
     Dosage: SUCCESSIVELY GIVEN 50% 20ML GLUCOSE VIA ?IV INFUSION
     Route: 042
  21. DEXTROSE [Concomitant]
     Active Substance: DEXTROSE\DEXTROSE MONOHYDRATE
     Dosage: 10% GLUCOSE 500ML VIA IV DRIP
     Route: 041
  22. DROTAVERINE [Concomitant]
     Active Substance: DROTAVERINE
     Indication: Product used for unknown indication
     Route: 041
  23. SODIUM CHLORIDE [Concomitant]
     Active Substance: SODIUM CHLORIDE
     Indication: Product used for unknown indication
     Dosage: IV DRIP OF 0.9% 100ML ONCE DAILY
     Route: 041
  24. SODIUM CHLORIDE [Concomitant]
     Active Substance: SODIUM CHLORIDE
     Dosage: 0.9% SODIUM-CHLORIDE INJECTION 5ML
  25. SODIUM CHLORIDE [Concomitant]
     Active Substance: SODIUM CHLORIDE
     Dosage: IV DRIP OF 0.9% SODIUM CHLORIDE INJECTION ?100ML
     Route: 041
  26. SODIUM CHLORIDE [Concomitant]
     Active Substance: SODIUM CHLORIDE
     Dosage: 0.9% SODIUM CHLORIDE INJECTION 5ML
  27. RABEPRAZOLE [Concomitant]
     Active Substance: RABEPRAZOLE
     Indication: Abdominal pain
     Route: 041

REACTIONS (4)
  - Cardio-respiratory arrest [Fatal]
  - Hypoglycaemia [Fatal]
  - Abdominal pain [Unknown]
  - Drug ineffective for unapproved indication [Unknown]
